FAERS Safety Report 13185494 (Version 3)
Quarter: 2017Q1

REPORT INFORMATION
  Report Type: Report from Study
  Country: None (occurrence: PT)
  Receive Date: 20170203
  Receipt Date: 20170309
  Transmission Date: 20170428
  Serious: Yes (Other)
  Sender: FDA-Public Use
  Company Number: PT-ABBVIE-17P-130-1856616-00

PATIENT
  Age: 66 Year
  Sex: Female

DRUGS (5)
  1. STRUXART [Concomitant]
     Indication: ARTHROPATHY
     Dosage: UNKNOWN
     Route: 048
  2. HUMIRA [Suspect]
     Active Substance: ADALIMUMAB
     Dosage: HUMIRA 40MG/0.4ML
     Route: 058
     Dates: start: 2016
  3. HUMIRA [Suspect]
     Active Substance: ADALIMUMAB
     Indication: PRODUCT USED FOR UNKNOWN INDICATION
     Route: 058
  4. CALCIUM [Concomitant]
     Active Substance: CALCIUM
     Indication: ANKYLOSING SPONDYLITIS
     Route: 048
  5. HUMIRA [Suspect]
     Active Substance: ADALIMUMAB
     Indication: ANKYLOSING SPONDYLITIS
     Dosage: HUMIRA 40MG/0.8ML
     Route: 058
     Dates: start: 20100423, end: 2016

REACTIONS (12)
  - Pruritus [Recovered/Resolved]
  - Pruritus [Recovered/Resolved]
  - Faeces hard [Recovered/Resolved]
  - Burning sensation [Recovered/Resolved]
  - Haemorrhoids [Recovered/Resolved]
  - Vulvovaginal pruritus [Recovered/Resolved]
  - Haemorrhoidal haemorrhage [Recovered/Resolved]
  - Constipation [Recovered/Resolved]
  - Skin abrasion [Recovered/Resolved]
  - Pruritus [Recovered/Resolved]
  - Burning sensation [Recovered/Resolved]
  - Anal pruritus [Recovered/Resolved]

NARRATIVE: CASE EVENT DATE: 201701
